FAERS Safety Report 20753060 (Version 1)
Quarter: 2022Q2

REPORT INFORMATION
  Report Type: Spontaneous
  Country: US (occurrence: None)
  Receive Date: 20220426
  Receipt Date: 20220426
  Transmission Date: 20220720
  Serious: No
  Sender: FDA-Public Use
  Company Number: US-ROCHE-2986411

PATIENT
  Age: 79 Year
  Sex: Female

DRUGS (6)
  1. ESBRIET [Suspect]
     Active Substance: PIRFENIDONE
     Indication: Idiopathic pulmonary fibrosis
     Dosage: ONE TABLET THREE TIMES A DAY1-7, 543 MG THREE TIMES A DAY 8-14, 801 MG DAY 12 AND ONGOING.
     Route: 048
     Dates: start: 20211101
  2. OXYGEN [Concomitant]
     Active Substance: OXYGEN
     Dosage: OXYGEN 2 L AT REST AND 4 L WITH EXERTION/MOVEMENT.
  3. ALBUTEROL SULFATE [Concomitant]
     Active Substance: ALBUTEROL SULFATE
  4. ASPIRIN [Concomitant]
     Active Substance: ASPIRIN
  5. LIPITOR [Concomitant]
     Active Substance: ATORVASTATIN CALCIUM
  6. LEVOTHYROXINE [Concomitant]
     Active Substance: LEVOTHYROXINE

REACTIONS (3)
  - Headache [Recovering/Resolving]
  - Nausea [Recovering/Resolving]
  - Hunger [Unknown]

NARRATIVE: CASE EVENT DATE: 20211129
